FAERS Safety Report 7971017-5 (Version None)
Quarter: 2011Q4

REPORT INFORMATION
  Report Type: 
  Country: None (occurrence: None)
  Receive Date: 20111212
  Receipt Date: 20111205
  Transmission Date: 20120403
  Serious: Yes (Other)
  Sender: FDA-Public Use
  Company Number: US-ASTRAZENECA-2011SE59958

PATIENT
  Age: 43 Year
  Sex: Female

DRUGS (33)
  1. XOPENEX [Concomitant]
     Dosage: 45 MCG/ACTUATION AEROSOL INHALER INHALE 2 PUFF TWO TIMES A DAY
     Route: 055
  2. VITAMIN D [Concomitant]
     Dosage: 1000 UNIT DAILY
     Route: 048
  3. METFORMIN HCL [Concomitant]
     Route: 048
  4. SODIUM CHLORIDE NASI [Concomitant]
     Dosage: 1 SPRAY EVERY 8 HOURS
     Route: 045
  5. TOPAMAX [Concomitant]
     Route: 048
  6. IRON [Concomitant]
     Route: 048
  7. PULMICORT FLEXHALER [Suspect]
     Dosage: 180 MCG TWO PUFFS TWICE A DAY
     Route: 055
  8. MAGNESIUM HYDROXIDE TAB [Concomitant]
     Dosage: ONE IN AM AFTER PREDNISONE. ONE IN PM IF NEEDED
     Route: 048
  9. NORTRIPTYLINE HCL [Concomitant]
     Route: 048
  10. MIRALAX [Concomitant]
     Dosage: 3350 17 GRAM/DOSE 1 TSF 2 TIMES A DAY AS NEEDED
     Route: 048
  11. XOPENEX [Concomitant]
     Dosage: 45 MCG/ACTUATION AEROSOL INHALER INHALE 2 PUFF TWO TIMES A DAY
     Route: 055
  12. QVAR 40 [Concomitant]
     Dosage: INHALE 2 PUFFS TWO TIME A DAY
     Route: 055
  13. CODEINE SULFATE [Concomitant]
     Dosage: AS NEEDED
     Route: 048
  14. LEVSIN [Concomitant]
     Indication: PAIN
     Dosage: 1-2 TABLET EVERY 6 HOURS AS NEEDED, EVERY 4-6 HOURS PRN
     Route: 060
  15. CLEMASTINE FUMARATE [Concomitant]
     Dosage: 1.5 TABLET 2 TIMES A DAY PER HOME DOSING
     Route: 048
  16. CLONAZEPAM [Concomitant]
     Route: 048
  17. MAGTAB [Concomitant]
     Route: 048
  18. MOMETASONE FUROATE [Concomitant]
     Dosage: 2 PUFF INTO EACH NOSTRILS TWO TIMES A DAY
     Route: 045
  19. NEXIUM [Suspect]
     Route: 048
  20. XOPENEX [Concomitant]
     Indication: COUGH
     Dosage: 12.5 MG/3 ML INHALE ONE PUFF AS DIRECTED THREE TIMES A DAY
     Route: 055
  21. HYDROCHLOROTHIAZIDE [Concomitant]
     Dosage: HALF TO 1 DAILY AS NEEDED
     Route: 048
  22. DESENEX JOCK ITCH [Concomitant]
     Dosage: APPLY TO SKIN
     Route: 061
  23. PRILOSEC [Suspect]
     Indication: GASTROOESOPHAGEAL REFLUX DISEASE
     Route: 048
  24. SEROQUEL [Suspect]
     Route: 048
  25. XOPENEX [Concomitant]
     Dosage: 45 MCG/ACTUATION AEROSOL INHALER INHALE 2 PUFF TWO TIMES A DAY
     Route: 055
  26. TESSALON [Concomitant]
     Route: 048
  27. MORPHINE [Concomitant]
     Indication: PAIN
     Dosage: 15 MG EVERY 6 TO 8 HOURS AS NEEDED
     Route: 048
  28. SPIRIVA WITH HANDIHALER [Concomitant]
     Dosage: INHALE 1 PUFF CAP W/INHALATION DEVICE DAILY
  29. XOPENEX [Concomitant]
     Indication: DYSPNOEA
     Dosage: 12.5 MG/3 ML INHALE ONE PUFF AS DIRECTED THREE TIMES A DAY
     Route: 055
  30. PREDNISONE TAB [Concomitant]
     Route: 048
  31. CINNAMON [Concomitant]
     Route: 048
  32. XOPENEX [Concomitant]
     Indication: WHEEZING
     Dosage: 12.5 MG/3 ML INHALE ONE PUFF AS DIRECTED THREE TIMES A DAY
     Route: 055
  33. ATROVENT [Concomitant]
     Dosage: 2 PUFFS 2 TIMES A DAY PM
     Route: 045

REACTIONS (15)
  - BIPOLAR DISORDER [None]
  - DRUG HYPERSENSITIVITY [None]
  - INAPPROPRIATE SCHEDULE OF DRUG ADMINISTRATION [None]
  - ASTHMA [None]
  - HEADACHE [None]
  - DRUG INTOLERANCE [None]
  - MULTIPLE ALLERGIES [None]
  - POLYCYSTIC OVARIES [None]
  - MIGRAINE [None]
  - OEDEMA [None]
  - DRUG DOSE OMISSION [None]
  - ASPIRATION [None]
  - GASTROOESOPHAGEAL REFLUX DISEASE [None]
  - OBESITY [None]
  - ABDOMINAL DISCOMFORT [None]
